FAERS Safety Report 5875163-1 (Version None)
Quarter: 2008Q3

REPORT INFORMATION
  Report Type: 
  Country: None (occurrence: None)
  Receive Date: 20080909
  Receipt Date: 20080828
  Transmission Date: 20090109
  Serious: Yes (Hospitalization, Other)
  Sender: FDA-Public Use
  Company Number: US-JNJFOC-20080806570

PATIENT
  Sex: Female

DRUGS (4)
  1. REMICADE [Suspect]
  2. REMICADE [Suspect]
     Indication: CROHN'S DISEASE
  3. BONIVA [Suspect]
     Indication: OSTEOPOROSIS
     Route: 048
  4. CIPRO [Suspect]
     Indication: DRUG USE FOR UNKNOWN INDICATION

REACTIONS (8)
  - ANAEMIA [None]
  - DEHYDRATION [None]
  - IMMUNE SYSTEM DISORDER [None]
  - KIDNEY INFECTION [None]
  - PNEUMONIA [None]
  - RASH [None]
  - RESPIRATORY TRACT INFECTION [None]
  - SINUSITIS [None]
